FAERS Safety Report 5890351-6 (Version None)
Quarter: 2008Q3

REPORT INFORMATION
  Report Type: 
  Country: None (occurrence: None)
  Receive Date: 20080918
  Receipt Date: 20080905
  Transmission Date: 20090109
  Serious: Yes (Hospitalization, Other)
  Sender: FDA-Public Use
  Company Number: 2008-03300

PATIENT
  Age: 53 Year
  Sex: Male
  Weight: 60.7 kg

DRUGS (2)
  1. VELCADE [Suspect]
     Indication: HEAD AND NECK CANCER
     Dosage: 0.7 MG/M2, IV BOLUS
     Route: 040
     Dates: start: 20080630, end: 20080821
  2. CETUXIMAB(CETUXIMAB) INJECTION, 400MG/M2 [Suspect]
     Indication: HEAD AND NECK CANCER
     Dosage: 400 MG/M2, INTRAVENOUS
     Route: 042
     Dates: start: 20080630, end: 20080818

REACTIONS (9)
  - DRY MOUTH [None]
  - DYSPHAGIA [None]
  - FATIGUE [None]
  - HYPOTENSION [None]
  - MUCOSAL INFLAMMATION [None]
  - ORAL PAIN [None]
  - RADIATION SKIN INJURY [None]
  - SALIVARY GLAND DISORDER [None]
  - STOMATITIS [None]
